FAERS Safety Report 11074275 (Version 1)
Quarter: 2015Q2

REPORT INFORMATION
  Report Type: Spontaneous
  Country: IT (occurrence: None)
  Receive Date: 20150427
  Receipt Date: 20150427
  Transmission Date: 20150821
  Serious: Yes (Death, Congenital Anomaly, Other)
  Sender: FDA-Public Use
  Company Number: IT-2015VAL000272

PATIENT
  Sex: Female

DRUGS (1)
  1. METHERGINE [Suspect]
     Active Substance: METHYLERGONOVINE MALEATE
     Indication: PRODUCT USED FOR UNKNOWN INDICATION
     Route: 064

REACTIONS (7)
  - Foetal exposure during pregnancy [None]
  - Foetal distress syndrome [None]
  - Right aortic arch [None]
  - Congenital diaphragmatic hernia [None]
  - Heart disease congenital [None]
  - Caesarean section [None]
  - Pulmonary valve stenosis [None]
